FAERS Safety Report 6760574-2 (Version None)
Quarter: 2010Q2

REPORT INFORMATION
  Report Type: 
  Country: None (occurrence: None)
  Receive Date: 20100608
  Receipt Date: 20100527
  Transmission Date: 20101027
  Serious: Yes (Other)
  Sender: FDA-Public Use
  Company Number: SE-PFIZER INC-2010066800

PATIENT
  Age: 37 Year
  Sex: Female

DRUGS (3)
  1. SYNAREL [Suspect]
     Dosage: UNK
     Dates: start: 20100523
  2. SERTRALINE HCL [Suspect]
     Dosage: 50 MG, UNK
     Dates: start: 20091005
  3. SOBRIL [Concomitant]
     Dosage: UNK

REACTIONS (2)
  - DEPRESSION [None]
  - PANIC ATTACK [None]
